FAERS Safety Report 21726232 (Version 1)
Quarter: 2022Q4

REPORT INFORMATION
  Report Type: Report from Study
  Country: US (occurrence: US)
  Receive Date: 20221214
  Receipt Date: 20221214
  Transmission Date: 20230113
  Serious: No
  Sender: FDA-Public Use
  Company Number: US-ABBVIE-4197728

PATIENT
  Age: 38 Year
  Sex: Female

DRUGS (1)
  1. HUMIRA [Suspect]
     Active Substance: ADALIMUMAB
     Indication: Rheumatoid arthritis
     Route: 058
     Dates: start: 202210

REACTIONS (12)
  - Urine abnormality [Unknown]
  - Therapeutic product effect decreased [Unknown]
  - Urticaria [Recovering/Resolving]
  - Skin exfoliation [Recovering/Resolving]
  - Candida infection [Recovering/Resolving]
  - Abdominal pain upper [Recovering/Resolving]
  - Injection site pain [Unknown]
  - Headache [Recovering/Resolving]
  - Influenza like illness [Recovering/Resolving]
  - Oropharyngeal pain [Recovering/Resolving]
  - Myalgia [Unknown]
  - Abdominal pain upper [Recovering/Resolving]

NARRATIVE: CASE EVENT DATE: 20221108
